FAERS Safety Report 9753878 (Version 2)
Quarter: 2013Q4

REPORT INFORMATION
  Report Type: Spontaneous
  Country: US (occurrence: US)
  Receive Date: 20131213
  Receipt Date: 20131213
  Transmission Date: 20140711
  Serious: No
  Sender: FDA-Public Use
  Company Number: US-GILEAD-2010-0027010

PATIENT
  Age: 63 Year
  Sex: Female
  Weight: 86.64 kg

DRUGS (10)
  1. LETAIRIS [Suspect]
     Indication: PULMONARY ARTERIAL HYPERTENSION
     Route: 048
     Dates: start: 20091014, end: 20100127
  2. SPIRIVA [Concomitant]
  3. ADVAIR [Concomitant]
  4. SINGULAIR [Concomitant]
  5. RHINOCORT [Concomitant]
  6. PREDNISONE [Concomitant]
  7. ACTONEL [Concomitant]
  8. SULFASALAZIN [Concomitant]
  9. AMBIEN [Concomitant]
  10. FERROUS [Concomitant]

REACTIONS (3)
  - Oedema peripheral [Recovered/Resolved]
  - Dyspnoea [Recovered/Resolved]
  - No therapeutic response [Recovered/Resolved]
